FAERS Safety Report 14924005 (Version 1)
Quarter: 2018Q2

REPORT INFORMATION
  Report Type: Spontaneous
  Country: FR (occurrence: FR)
  Receive Date: 20180522
  Receipt Date: 20180522
  Transmission Date: 20180711
  Serious: Yes (Other)
  Sender: FDA-Public Use
  Company Number: FR-MERCK KGAA-2048232

PATIENT
  Age: 58 Year
  Sex: Female

DRUGS (1)
  1. NOVOTHYROX [Suspect]
     Active Substance: LEVOTHYROXINE SODIUM
     Indication: HYPOTHYROIDISM

REACTIONS (19)
  - Anxiety [None]
  - Asthenia [None]
  - Mood swings [None]
  - Blood thyroid stimulating hormone increased [None]
  - Fatigue [None]
  - Nervousness [None]
  - Insomnia [None]
  - Tachycardia [None]
  - Nightmare [None]
  - Irritability [None]
  - Hot flush [None]
  - Thyroxine free decreased [None]
  - Alopecia [None]
  - Apathy [None]
  - Tri-iodothyronine free decreased [None]
  - Blood 25-hydroxycholecalciferol decreased [None]
  - Weight increased [None]
  - Depressed mood [None]
  - Gamma-glutamyltransferase increased [None]

NARRATIVE: CASE EVENT DATE: 20171010
